FAERS Safety Report 11008223 (Version 1)
Quarter: 2015Q2

REPORT INFORMATION
  Report Type: Spontaneous
  Country: US (occurrence: None)
  Receive Date: 20150409
  Receipt Date: 20150409
  Transmission Date: 20150821
  Serious: Yes (Death, Life-Threatening, Hospitalization)
  Sender: FDA-Public Use
  Company Number: None

PATIENT
  Age: 84 Year
  Sex: Female
  Weight: 65.1 kg

DRUGS (2)
  1. OPDIVO [Suspect]
     Active Substance: NIVOLUMAB
     Indication: LUNG NEOPLASM MALIGNANT
     Dates: start: 20150325, end: 20150325
  2. OPDIVO [Suspect]
     Active Substance: NIVOLUMAB
     Indication: CHEMOTHERAPY
     Dates: start: 20150325, end: 20150325

REACTIONS (4)
  - Multi-organ failure [None]
  - General physical health deterioration [None]
  - Acute hepatic failure [None]
  - Hepatotoxicity [None]

NARRATIVE: CASE EVENT DATE: 20150407
